FAERS Safety Report 4354625-2 (Version None)
Quarter: 2004Q2

REPORT INFORMATION
  Report Type: 
  Country: None (occurrence: None)
  Receive Date: 20040506
  Receipt Date: 20040506
  Transmission Date: 20050107
  Serious: Yes (Life-Threatening)
  Sender: FDA-Public Use
  Company Number: None

PATIENT
  Sex: Female

DRUGS (3)
  1. CISPLATIN [Suspect]
     Indication: CERVIX CARCINOMA
     Dosage: 75 MG/M2 = 140MG IV
     Route: 042
     Dates: start: 20021209
  2. FLUOROURACIL [Suspect]
     Indication: CERVIX CARCINOMA
     Dosage: 950 MG IV
     Route: 042
     Dates: start: 20021209
  3. CELEBREX [Concomitant]

REACTIONS (4)
  - DRUG TOXICITY [None]
  - NEUTROPENIA [None]
  - PYREXIA [None]
  - THROMBOCYTOPENIA [None]
